FAERS Safety Report 17773776 (Version 2)
Quarter: 2021Q2

REPORT INFORMATION
  Report Type: Report from Study
  Country: None (occurrence: US)
  Receive Date: 20200513
  Receipt Date: 20210610
  Transmission Date: 20210716
  Serious: Yes (Hospitalization, Other)
  Sender: FDA-Public Use
  Company Number: US-ABBVIE-20K-163-3396111-00

PATIENT
  Age: 59 Year
  Sex: Female

DRUGS (3)
  1. HUMIRA [Suspect]
     Active Substance: ADALIMUMAB
     Route: 058
     Dates: start: 20200506
  2. HUMIRA [Suspect]
     Active Substance: ADALIMUMAB
     Indication: PSORIATIC ARTHROPATHY
     Route: 058
     Dates: start: 2015, end: 2015
  3. HUMIRA [Suspect]
     Active Substance: ADALIMUMAB
     Route: 058
     Dates: end: 202002

REACTIONS (12)
  - Brain operation [Unknown]
  - Cerebrospinal fluid leakage [Unknown]
  - Migraine [Unknown]
  - Joint stiffness [Unknown]
  - Anxiety [Unknown]
  - Gait disturbance [Unknown]
  - Balance disorder [Unknown]
  - Depression [Unknown]
  - Disturbance in attention [Unknown]
  - Skull fracture [Unknown]
  - Arthralgia [Unknown]
  - Deafness unilateral [Unknown]

NARRATIVE: CASE EVENT DATE: 20200506
